FAERS Safety Report 13916322 (Version 3)
Quarter: 2018Q1

REPORT INFORMATION
  Report Type: Spontaneous
  Country: US (occurrence: US)
  Receive Date: 20170829
  Receipt Date: 20180228
  Transmission Date: 20180508
  Serious: Yes (Other)
  Sender: FDA-Public Use
  Company Number: US-PFIZER INC-2017365581

PATIENT
  Age: 65 Year
  Sex: Female
  Weight: 106 kg

DRUGS (15)
  1. PAROXETINE. [Concomitant]
     Active Substance: PAROXETINE
     Dosage: 20 MG, DAILY
     Route: 048
  2. HYDROCODONE/ACETAMINOPHEN [Concomitant]
     Active Substance: ACETAMINOPHEN\HYDROCODONE
     Dosage: 1 DF, AS NEEDED [HYDROCODONE-7.5MG,ACETAMINOPHEN-325 MG][Q4HR (INTERVAL)]
     Route: 048
  3. XGEVA [Concomitant]
     Active Substance: DENOSUMAB
     Indication: METASTASES TO BONE
     Dosage: 1.7 ML, MONTHLY (120 MG/1.7 ML Q4WK)
     Route: 058
  4. POTASSIUM CHLORIDE. [Concomitant]
     Active Substance: POTASSIUM CHLORIDE
     Dosage: 40 MEQ, 2X/DAY
     Route: 048
  5. ASPIR 81 [Concomitant]
     Dosage: 81 MG, DAILY
     Route: 048
  6. IBRANCE [Suspect]
     Active Substance: PALBOCICLIB
     Indication: BREAST CANCER
     Dosage: 125 MG, CYCLIC[DAILY FOR 21 DAYS, THEN OFF FOR 7 DAYS]
     Route: 048
     Dates: start: 20150505
  7. ZOMETA [Concomitant]
     Active Substance: ZOLEDRONIC ACID
     Dosage: UNK
  8. NEURONTIN [Concomitant]
     Active Substance: GABAPENTIN
     Indication: NEURALGIA
     Dosage: 300 MG, 1X/DAY [AT NIGHT] [MAY INCREASE TO THREE TIMES A DAY]
     Route: 048
  9. FEMARA [Suspect]
     Active Substance: LETROZOLE
     Indication: BREAST CANCER
     Dosage: 2.5 MG, DAILY
     Route: 048
     Dates: start: 20150505
  10. HYDROCHLOROTHIAZIDE. [Concomitant]
     Active Substance: HYDROCHLOROTHIAZIDE
     Dosage: 25 MG, DAILY
     Route: 048
  11. METFORMIN [Concomitant]
     Active Substance: METFORMIN HYDROCHLORIDE
     Dosage: 1000 MG, 2X/DAY[WITH BREAKFAST AND SUPPER]
     Route: 048
  12. LANTUS [Concomitant]
     Active Substance: INSULIN GLARGINE
     Dosage: 16 IU, 1X/DAY (INJECT 16 UNITS ONCE DAILY AT BEDTIME)
     Route: 058
  13. DENOSUMAB [Concomitant]
     Active Substance: DENOSUMAB
     Dosage: 120 MG, UNK
     Route: 042
  14. IBRANCE [Suspect]
     Active Substance: PALBOCICLIB
     Dosage: UNK
  15. GLIMEPIRIDE. [Concomitant]
     Active Substance: GLIMEPIRIDE
     Dosage: 4 MG, 2X/DAY
     Route: 048

REACTIONS (12)
  - Dry skin [Unknown]
  - Arthralgia [Unknown]
  - Leukopenia [Unknown]
  - Neutropenia [Unknown]
  - Mucosal inflammation [Unknown]
  - Anaemia [Unknown]
  - Fatigue [Unknown]
  - Dermatitis acneiform [Unknown]
  - Myalgia [Unknown]
  - Pain in extremity [Unknown]
  - Cytopenia [Unknown]
  - Musculoskeletal disorder [Unknown]
